FAERS Safety Report 6714505-1 (Version None)
Quarter: 2010Q2

REPORT INFORMATION
  Report Type: 
  Country: None (occurrence: None)
  Receive Date: 20100506
  Receipt Date: 20100426
  Transmission Date: 20101027
  Serious: Yes (Other)
  Sender: FDA-Public Use
  Company Number: GB-WATSON-2010-06158

PATIENT

DRUGS (4)
  1. RISPERIDONE [Suspect]
     Indication: SCHIZOPHRENIA
     Dosage: 5 MG, DAILY
     Route: 048
  2. MODAFINIL [Suspect]
     Indication: NARCOLEPSY
     Dosage: 200 MG, DAILY
     Route: 048
  3. ZAPONEX [Suspect]
     Indication: SCHIZOPHRENIA
     Dosage: 50 MG, DAILY
     Route: 048
     Dates: start: 20100401, end: 20100401
  4. MODAFINIL [Concomitant]
     Dosage: 7 1/2 MG, DAILY
     Route: 048

REACTIONS (2)
  - NEUTROPENIA [None]
  - NEUTROPHIL COUNT DECREASED [None]
